FAERS Safety Report 4626882-6 (Version None)
Quarter: 2005Q1

REPORT INFORMATION
  Report Type: 
  Country: None (occurrence: None)
  Receive Date: 20050331
  Receipt Date: 20050317
  Transmission Date: 20050727
  Serious: Yes (Other)
  Sender: FDA-Public Use
  Company Number: 2005BI006072

PATIENT
  Age: 56 Year
  Sex: Male
  Weight: 147.419 kg

DRUGS (4)
  1. AVONEX [Suspect]
     Indication: MULTIPLE SCLEROSIS
     Dosage: SEE IMAGE
     Route: 030
     Dates: start: 19960101, end: 19970101
  2. AVONEX [Suspect]
     Indication: MULTIPLE SCLEROSIS
     Dosage: SEE IMAGE
     Route: 030
     Dates: start: 19970101, end: 20030801
  3. AVONEX [Suspect]
     Indication: MULTIPLE SCLEROSIS
     Dosage: 60 UG;QW;IM
     Route: 030
     Dates: start: 20030801
  4. ATIVAN [Concomitant]

REACTIONS (10)
  - BACK PAIN [None]
  - BODY HEIGHT DECREASED [None]
  - CONDITION AGGRAVATED [None]
  - DIABETES MELLITUS NON-INSULIN-DEPENDENT [None]
  - FLUID RETENTION [None]
  - INCREASED TENDENCY TO BRUISE [None]
  - MULTIPLE MYELOMA [None]
  - NEUROPATHY PERIPHERAL [None]
  - THROMBOSIS [None]
  - URINARY TRACT DISORDER [None]
